FAERS Safety Report 13110093 (Version 1)
Quarter: 2017Q1

REPORT INFORMATION
  Report Type: Spontaneous
  Country: US (occurrence: US)
  Receive Date: 20170112
  Receipt Date: 20170112
  Transmission Date: 20170428
  Serious: Yes (Other)
  Sender: FDA-Public Use
  Company Number: US-ROCHE-1210276

PATIENT
  Age: 55 Year
  Sex: Male

DRUGS (5)
  1. ACTILYSE [Suspect]
     Active Substance: ALTEPLASE
     Route: 042
  2. ABCIXIMAB [Suspect]
     Active Substance: ABCIXIMAB
     Route: 013
  3. ACTILYSE [Suspect]
     Active Substance: ALTEPLASE
     Route: 042
  4. ABCIXIMAB [Suspect]
     Active Substance: ABCIXIMAB
     Indication: CEREBRAL ARTERY OCCLUSION
     Route: 013
  5. ACTILYSE [Suspect]
     Active Substance: ALTEPLASE
     Indication: CEREBRAL ARTERY OCCLUSION
     Route: 042

REACTIONS (1)
  - Drug ineffective [Unknown]
